FAERS Safety Report 17165688 (Version 1)
Quarter: 2019Q4

REPORT INFORMATION
  Report Type: Spontaneous
  Country: FR (occurrence: FR)
  Receive Date: 20191217
  Receipt Date: 20191217
  Transmission Date: 20200122
  Serious: Yes (Other)
  Sender: FDA-Public Use
  Company Number: FR-PFIZER INC-2019534514

PATIENT
  Age: 72 Year
  Sex: Female
  Weight: 74 kg

DRUGS (6)
  1. MEDROL [Suspect]
     Active Substance: METHYLPREDNISOLONE
     Dosage: 100 MG, 1X/DAY
     Route: 048
     Dates: start: 20190802, end: 20190804
  2. ERBITUX [Suspect]
     Active Substance: CETUXIMAB
     Indication: COLORECTAL CANCER
     Dosage: 860 MG, 1X/DAY
     Route: 042
     Dates: start: 20190801, end: 20190801
  3. SOLU-MEDROL [Suspect]
     Active Substance: METHYLPREDNISOLONE SODIUM SUCCINATE
     Indication: COLORECTAL CANCER
     Dosage: 120 MG, 1X/DAY
     Route: 042
     Dates: start: 20190801, end: 20190801
  4. IRINOTECAN MEDAC [Suspect]
     Active Substance: IRINOTECAN
     Indication: COLORECTAL CANCER
     Dosage: 309.6 MG, 1X/DAY
     Route: 042
     Dates: start: 20190801, end: 20190801
  5. FLUOROURACILE ACCORD [Suspect]
     Active Substance: FLUOROURACIL
     Dosage: 688 MG, SINGLE
     Route: 042
     Dates: start: 20190801, end: 20190801
  6. FLUOROURACILE ACCORD [Suspect]
     Active Substance: FLUOROURACIL
     Indication: COLORECTAL CANCER
     Dosage: 2400 MG/M2, SINGLE
     Route: 041
     Dates: start: 20190801, end: 20190802

REACTIONS (2)
  - Herpes ophthalmic [Recovered/Resolved]
  - Ulcerative keratitis [Recovered/Resolved]

NARRATIVE: CASE EVENT DATE: 20190802
